FAERS Safety Report 6585751-5 (Version None)
Quarter: 2010Q1

REPORT INFORMATION
  Report Type: 
  Country: None (occurrence: None)
  Receive Date: 20100204
  Receipt Date: 20100120
  Transmission Date: 20100710
  Serious: Yes (Other)
  Sender: FDA-Public Use
  Company Number: 2010S1000463

PATIENT
  Age: 57 Year
  Sex: Female

DRUGS (8)
  1. PHOSPHOSODA FLAVOR NOT SPECIFIED [Suspect]
     Indication: COLONOSCOPY
     Dosage: 90 ML; TOTAL; PO
     Route: 048
     Dates: start: 20080710
  2. LEVOXYL [Concomitant]
  3. NEXIUM [Concomitant]
  4. EVISTA  /01303201/ [Concomitant]
  5. KLONOPIN [Concomitant]
  6. WELLBUTRIN [Concomitant]
  7. LISINOPRIL [Concomitant]
  8. ELAVIL [Concomitant]

REACTIONS (1)
  - RENAL DISORDER [None]
